FAERS Safety Report 6912166-X (Version None)
Quarter: 2010Q3

REPORT INFORMATION
  Report Type: 
  Country: None (occurrence: None)
  Receive Date: 20100806
  Receipt Date: 20071205
  Transmission Date: 20110219
  Serious: No
  Sender: FDA-Public Use
  Company Number: US-PFIZER INC-2007103805

PATIENT
  Sex: Female
  Weight: 63.636 kg

DRUGS (4)
  1. DETROL LA [Suspect]
     Indication: MICTURITION URGENCY
     Route: 048
     Dates: start: 20071127
  2. DETROL LA [Suspect]
     Indication: HYPERTONIC BLADDER
  3. FLEXERIL [Concomitant]
  4. PREMARIN [Concomitant]

REACTIONS (2)
  - DRY SKIN [None]
  - RASH PRURITIC [None]
